FAERS Safety Report 7224223-1 (Version None)
Quarter: 2011Q1

REPORT INFORMATION
  Report Type: 
  Country: None (occurrence: None)
  Receive Date: 20110103
  Receipt Date: 20101229
  Transmission Date: 20110831
  Serious: Yes (Death)
  Sender: FDA-Public Use
  Company Number: 1218029-2010-000001

PATIENT
  Age: 5 Month
  Sex: Male
  Weight: 7 kg

DRUGS (1)
  1. HUMPHREYS VERY CHERRY SWIFT STRIPS [Suspect]
     Indication: TEETHING
     Dosage: 1 STRIP, 047, (1 TIME ONLY)
     Dates: start: 20101112

REACTIONS (1)
  - SUDDEN INFANT DEATH SYNDROME [None]
